FAERS Safety Report 6860922-9 (Version None)
Quarter: 2010Q3

REPORT INFORMATION
  Report Type: 
  Country: None (occurrence: None)
  Receive Date: 20100715
  Receipt Date: 20100701
  Transmission Date: 20110219
  Serious: Yes (Hospitalization, Other)
  Sender: FDA-Public Use
  Company Number: 2010AP001363

PATIENT
  Age: 74 Year
  Sex: Female

DRUGS (8)
  1. RISPERIDONE [Suspect]
     Indication: PSYCHOMOTOR HYPERACTIVITY
     Dosage: 0.0156 MG;QD; 1 MG;QD
  2. CITALOPRAM HYDROBROMIDE [Suspect]
     Indication: DEPRESSION
     Dosage: 40 MG; QD; PO
     Route: 048
  3. LEVOTHYROXIRE [Concomitant]
  4. MEMANTINE [Concomitant]
  5. DONEPEZIL HCL [Concomitant]
  6. ATENOLOL [Concomitant]
  7. ACETYLSALICYLIC ACID SRT [Concomitant]
  8. QUETIAPINE [Concomitant]

REACTIONS (10)
  - ABNORMAL BEHAVIOUR [None]
  - AGGRESSION [None]
  - CLONUS [None]
  - CONFUSIONAL STATE [None]
  - DISORIENTATION [None]
  - HYPERHIDROSIS [None]
  - MYOCLONUS [None]
  - SEROTONIN SYNDROME [None]
  - SPEECH DISORDER [None]
  - URINARY TRACT INFECTION [None]
